FAERS Safety Report 19673413 (Version 1)
Quarter: 2021Q3

REPORT INFORMATION
  Report Type: Spontaneous
  Country: US (occurrence: US)
  Receive Date: 20210809
  Receipt Date: 20210809
  Transmission Date: 20211014
  Serious: Yes (Hospitalization, Other)
  Sender: FDA-Public Use
  Company Number: US-AUROBINDO-AUR-APL-2012-03267

PATIENT
  Age: 36 Year
  Sex: Male

DRUGS (8)
  1. CLONAZEPAM. [Concomitant]
     Active Substance: CLONAZEPAM
     Indication: PSYCHOTHERAPY
     Dosage: 3 MILLIGRAM, ONCE A DAY
     Route: 065
  2. TOPIRAMATE. [Concomitant]
     Active Substance: TOPIRAMATE
     Indication: PSYCHOTHERAPY
     Dosage: 300 MILLIGRAM, ONCE A DAY
     Route: 065
  3. LITHIUM. [Concomitant]
     Active Substance: LITHIUM
     Indication: PSYCHOTHERAPY
     Dosage: 450 MILLIGRAM, ONCE A DAY
     Route: 065
  4. RISPERIDONE. [Concomitant]
     Active Substance: RISPERIDONE
     Indication: PSYCHOTHERAPY
     Dosage: 3 MILLIGRAM, ONCE A DAY
     Route: 065
  5. DIVALPROEX [Suspect]
     Active Substance: DIVALPROEX SODIUM
     Indication: SCHIZOAFFECTIVE DISORDER BIPOLAR TYPE
     Dosage: 1000 MILLIGRAM
     Route: 065
  6. DISULFIRAM. [Concomitant]
     Active Substance: DISULFIRAM
     Indication: PSYCHOTHERAPY
     Dosage: 250 MILLIGRAM, ONCE A DAY
     Route: 065
  7. CLOZAPINE. [Concomitant]
     Active Substance: CLOZAPINE
     Indication: PSYCHOTHERAPY
     Dosage: 300 MILLIGRAM, ONCE A DAY
     Route: 065
  8. DIVALPROEX [Suspect]
     Active Substance: DIVALPROEX SODIUM
     Dosage: UNK
     Route: 065

REACTIONS (6)
  - Dysarthria [Recovered/Resolved]
  - Antipsychotic drug level increased [Recovered/Resolved]
  - Cognitive disorder [Recovered/Resolved]
  - Arrhythmia [Recovered/Resolved]
  - Hyperammonaemic encephalopathy [Recovered/Resolved]
  - Somnolence [Recovered/Resolved]
